FAERS Safety Report 7932352-X (Version None)
Quarter: 2011Q4

REPORT INFORMATION
  Report Type: 
  Country: None (occurrence: None)
  Receive Date: 20111121
  Receipt Date: 20111104
  Transmission Date: 20120403
  Serious: Yes (Other)
  Sender: FDA-Public Use
  Company Number: US-ROCHE-792168

PATIENT
  Sex: Female
  Weight: 74.91 kg

DRUGS (5)
  1. ACCUTANE [Suspect]
     Indication: ACNE
     Route: 065
     Dates: start: 20040301, end: 20041101
  2. ADVAIR DISKUS 100/50 [Concomitant]
  3. ORTHO TRI-CYCLEN [Concomitant]
  4. NASACORT AQ [Concomitant]
  5. CETIRIZINE HCL [Concomitant]

REACTIONS (6)
  - DEPRESSION [None]
  - SWELLING [None]
  - FLUID RETENTION [None]
  - COLITIS ULCERATIVE [None]
  - CROHN'S DISEASE [None]
  - INFLAMMATORY BOWEL DISEASE [None]
